FAERS Safety Report 10380188 (Version 3)
Quarter: 2015Q1

REPORT INFORMATION
  Report Type: Spontaneous
  Country: DE (occurrence: DE)
  Receive Date: 20140813
  Receipt Date: 20150206
  Transmission Date: 20150720
  Serious: Yes (Other)
  Sender: FDA-Public Use
  Company Number: DE-AMGEN-DEUSP2014060142

PATIENT
  Age: 58 Year
  Sex: Female
  Weight: 58 kg

DRUGS (1)
  1. PROLIA [Suspect]
     Active Substance: DENOSUMAB
     Indication: OSTEOPOROSIS POSTMENOPAUSAL
     Dosage: 60 MG (1 SYRINGE), UNK
     Route: 058
     Dates: start: 20130522

REACTIONS (8)
  - Osteoporosis [Not Recovered/Not Resolved]
  - Breast pain [Recovered/Resolved]
  - Osteochondrosis [Unknown]
  - Spinal compression fracture [Not Recovered/Not Resolved]
  - Pain [Recovered/Resolved]
  - Gait disturbance [Unknown]
  - Bone density decreased [Unknown]
  - Activities of daily living impaired [Unknown]

NARRATIVE: CASE EVENT DATE: 201305
